FAERS Safety Report 16786791 (Version 1)
Quarter: 2019Q3

REPORT INFORMATION
  Report Type: Spontaneous
  Country: IN (occurrence: IN)
  Receive Date: 20190909
  Receipt Date: 20190909
  Transmission Date: 20191005
  Serious: Yes (Other)
  Sender: FDA-Public Use
  Company Number: IN-BRISTOL-MYERS SQUIBB COMPANY-BMS-2019-086121

PATIENT
  Age: 39 Year
  Sex: Female

DRUGS (1)
  1. NIVOLUMAB [Suspect]
     Active Substance: NIVOLUMAB
     Indication: OESOPHAGEAL CARCINOMA
     Dosage: 3 MILLIGRAM/KILOGRAM
     Route: 042

REACTIONS (5)
  - Thrombocytopenia [Unknown]
  - Pneumonitis [Unknown]
  - Autoimmune haemolytic anaemia [Unknown]
  - Intentional product use issue [Unknown]
  - Pancytopenia [Unknown]
